FAERS Safety Report 14265333 (Version 2)
Quarter: 2018Q1

REPORT INFORMATION
  Report Type: Report from Study
  Country: AR (occurrence: AR)
  Receive Date: 20171208
  Receipt Date: 20180111
  Transmission Date: 20180508
  Serious: Yes (Hospitalization, Other)
  Sender: FDA-Public Use
  Company Number: PHHY2017AR181879

PATIENT
  Age: 67 Year
  Sex: Male

DRUGS (1)
  1. ENTRESTO [Suspect]
     Active Substance: SACUBITRIL\VALSARTAN
     Indication: CARDIAC FAILURE CHRONIC
     Dosage: 2 DF (200 MG), UNK
     Route: 065
     Dates: start: 201606

REACTIONS (6)
  - Device malfunction [Unknown]
  - Fluid retention [Unknown]
  - Umbilical hernia [Recovered/Resolved]
  - Hypotension [Unknown]
  - Wound secretion [Unknown]
  - Abdominal distension [Unknown]

NARRATIVE: CASE EVENT DATE: 20171129
